FAERS Safety Report 5763734-2 (Version None)
Quarter: 2008Q2

REPORT INFORMATION
  Report Type: 
  Country: None (occurrence: None)
  Receive Date: 20080610
  Receipt Date: 20080603
  Transmission Date: 20081010
  Serious: Yes (Other)
  Sender: FDA-Public Use
  Company Number: US-ROCHE-568390

PATIENT
  Age: 84 Year
  Sex: Female

DRUGS (6)
  1. BONIVA [Suspect]
     Indication: OSTEOPOROSIS
     Route: 048
     Dates: start: 20070301, end: 20071201
  2. BONIVA [Suspect]
     Route: 048
     Dates: start: 20080601, end: 20080601
  3. LEVOXYL [Concomitant]
     Indication: HYPOTHYROIDISM
  4. MULTIVITAMIN NOS [Concomitant]
  5. CALCIUM [Concomitant]
  6. MAGNESIUM [Concomitant]

REACTIONS (3)
  - PITYRIASIS ROSEA [None]
  - RASH GENERALISED [None]
  - STEVENS-JOHNSON SYNDROME [None]
